FAERS Safety Report 20016259 (Version 1)
Quarter: 2021Q4

REPORT INFORMATION
  Report Type: Spontaneous
  Country: US (occurrence: None)
  Receive Date: 20211103
  Receipt Date: 20211103
  Transmission Date: 20220303
  Serious: Yes (Death)
  Sender: FDA-Public Use
  Company Number: None

PATIENT
  Age: 38 Year
  Sex: Female
  Weight: 55 kg

DRUGS (12)
  1. ADAKVEO [Suspect]
     Active Substance: CRIZANLIZUMAB-TMCA
     Indication: Sickle cell disease
     Dates: start: 20201116, end: 20211005
  2. Methadone 5 mg TID [Concomitant]
     Dates: start: 20091105, end: 20211024
  3. Vitamind D3 50mcg daily [Concomitant]
     Dates: end: 20211024
  4. Gabapentin 300mg daily [Concomitant]
     Dates: end: 20211024
  5. hydroxyurea 1500mg daily [Concomitant]
     Dates: end: 20211024
  6. Zoloft 50 mg daily [Concomitant]
     Dates: end: 20211024
  7. Folic Acid 1mg daily [Concomitant]
     Dates: end: 20211024
  8. Depo-Provera every 3 months [Concomitant]
     Dates: end: 20211024
  9. hydromorphone 4mg PRN [Concomitant]
     Dates: end: 20211024
  10. Jadenu 720 mg daily [Concomitant]
     Dates: end: 20211024
  11. Oxbryta 1000 mg daily [Concomitant]
     Dates: end: 20211024
  12. Zyrtec 10mg daily [Concomitant]
     Dates: end: 20211024

REACTIONS (6)
  - Dyspnoea [None]
  - Respiratory distress [None]
  - Sinus tachycardia [None]
  - Arrhythmia [None]
  - Pulseless electrical activity [None]
  - Cardiac arrest [None]

NARRATIVE: CASE EVENT DATE: 20211024
